FAERS Safety Report 13896556 (Version 1)
Quarter: 2017Q3

REPORT INFORMATION
  Report Type: Spontaneous
  Country: US (occurrence: None)
  Receive Date: 20170817
  Receipt Date: 20170817
  Transmission Date: 20171127
  Serious: No
  Sender: FDA-Public Use
  Company Number: None

PATIENT
  Sex: Female
  Weight: 111.13 kg

DRUGS (1)
  1. SIMPONI [Suspect]
     Active Substance: GOLIMUMAB
     Indication: JUVENILE PSORIATIC ARTHRITIS
     Dosage: 100MG QMONTH SUBQ
     Route: 058

REACTIONS (3)
  - Influenza [None]
  - Malaise [None]
  - Drug dose omission [None]
